FAERS Safety Report 17532670 (Version 3)
Quarter: 2020Q2

REPORT INFORMATION
  Report Type: Spontaneous
  Country: US (occurrence: US)
  Receive Date: 20200312
  Receipt Date: 20200512
  Transmission Date: 20200713
  Serious: No
  Sender: FDA-Public Use
  Company Number: US-PFIZER INC-2020106187

PATIENT
  Age: 58 Year
  Sex: Female

DRUGS (1)
  1. PNEUMOCOCCAL 13-VAL CONJ VAC (DIPHT CRM197 PROTEIN) [Suspect]
     Active Substance: PNEUMOCOCCAL 13-VALENT CONJUGATE VACCINE
     Indication: IMMUNISATION
     Dosage: SINGLE DOSE

REACTIONS (1)
  - Allergy to vaccine [Not Recovered/Not Resolved]

NARRATIVE: CASE EVENT DATE: 20151020
